FAERS Safety Report 24348651 (Version 1)
Quarter: 2024Q3

REPORT INFORMATION
  Report Type: Spontaneous
  Country: US (occurrence: US)
  Receive Date: 20240923
  Receipt Date: 20240923
  Transmission Date: 20241017
  Serious: No
  Sender: REVANCE THERAPEUTICS
  Company Number: US-REVANCE THERAPEUTICS INC.-US-REV-2024-000357

PATIENT

DRUGS (2)
  1. DAXIBOTULINUMTOXIN A-LANM [Suspect]
     Active Substance: DAXIBOTULINUMTOXIN A-LANM
     Indication: Skin wrinkling
     Dosage: UNK (30 U GLABELLA, 20 U FHL, 40 U LCL)
     Route: 065
     Dates: start: 202406
  2. DAXIBOTULINUMTOXIN A-LANM [Suspect]
     Active Substance: DAXIBOTULINUMTOXIN A-LANM
     Dosage: UNK (GLABELLA, FHL, LCL)
     Route: 065
     Dates: start: 20240620

REACTIONS (6)
  - Injection site swelling [Recovered/Resolved]
  - Injection site nodule [Not Recovered/Not Resolved]
  - Injection site swelling [Recovering/Resolving]
  - No adverse event [Unknown]
  - Underdose [Unknown]
  - Off label use [Unknown]

NARRATIVE: CASE EVENT DATE: 20240601
